FAERS Safety Report 15530082 (Version 2)
Quarter: 2018Q4

REPORT INFORMATION
  Report Type: Spontaneous
  Country: CO (occurrence: CO)
  Receive Date: 20181018
  Receipt Date: 20181029
  Transmission Date: 20190205
  Serious: Yes (Other)
  Sender: FDA-Public Use
  Company Number: CO-ARBOR PHARMACEUTICALS, LLC-CO-2018ARB001066

PATIENT
  Age: 62 Year
  Sex: Male

DRUGS (1)
  1. TRIPTODUR [Suspect]
     Active Substance: TRIPTORELIN
     Indication: PROSTATE CANCER
     Dosage: 22.5 MG, UNK
     Route: 030
     Dates: start: 20180829, end: 20181001

REACTIONS (2)
  - Haematuria [Unknown]
  - Abdominal pain [Unknown]

NARRATIVE: CASE EVENT DATE: 20180829
